FAERS Safety Report 6012892-3 (Version None)
Quarter: 2008Q4

REPORT INFORMATION
  Report Type: 
  Country: None (occurrence: None)
  Receive Date: 20081219
  Receipt Date: 20081212
  Transmission Date: 20090506
  Serious: No
  Sender: FDA-Public Use
  Company Number: US-BAYER-200813708NA

PATIENT
  Age: 32 Year
  Sex: Female
  Weight: 86 kg

DRUGS (1)
  1. MIRENA [Suspect]
     Indication: CONTRACEPTION
     Route: 015
     Dates: start: 20071015, end: 20080208

REACTIONS (4)
  - ABDOMINAL PAIN [None]
  - BREAST TENDERNESS [None]
  - PREGNANCY TEST POSITIVE [None]
  - PREGNANCY WITH CONTRACEPTIVE DEVICE [None]
